FAERS Safety Report 9252260 (Version 4)
Quarter: 2013Q2

REPORT INFORMATION
  Report Type: Spontaneous
  Country: US (occurrence: US)
  Receive Date: 20130424
  Receipt Date: 20130509
  Transmission Date: 20140414
  Serious: Yes (Hospitalization, Other)
  Sender: FDA-Public Use
  Company Number: US-VERTEX PHARMACEUTICALS INC.-2013-005275

PATIENT
  Age: 47 Year
  Sex: Male
  Weight: 66 kg

DRUGS (4)
  1. INCIVEK [Suspect]
     Indication: HEPATITIS C
     Dosage: 750 MG, TID
     Route: 048
     Dates: start: 20130422, end: 20130501
  2. PEGASYS [Suspect]
     Indication: HEPATITIS C
     Dosage: 180 ?G, QW
     Route: 058
     Dates: start: 20130422, end: 20130501
  3. COPEGUS [Suspect]
     Indication: HEPATITIS C
     Dosage: 600 MG, BID
     Route: 048
     Dates: start: 20130422, end: 20130501
  4. DIURETIC [Concomitant]
     Indication: POLYURIA
     Dosage: UNK, QD
     Route: 048

REACTIONS (14)
  - Coma [Recovered/Resolved]
  - Ammonia increased [Recovered/Resolved]
  - Blood pressure decreased [Recovered/Resolved]
  - Hallucination [Recovered/Resolved]
  - Thinking abnormal [Recovered/Resolved]
  - Syncope [Recovered/Resolved]
  - Dizziness [Recovered/Resolved]
  - Tremor [Recovered/Resolved]
  - Pollakiuria [Not Recovered/Not Resolved]
  - Poor quality sleep [Recovered/Resolved]
  - Decreased appetite [Not Recovered/Not Resolved]
  - Presyncope [Recovered/Resolved]
  - Vomiting [Recovered/Resolved]
  - Nausea [Recovered/Resolved]
